FAERS Safety Report 8153876-9 (Version None)
Quarter: 2012Q1

REPORT INFORMATION
  Report Type: 
  Country: None (occurrence: None)
  Receive Date: 20120221
  Receipt Date: 20120210
  Transmission Date: 20120608
  Serious: Yes (Hospitalization)
  Sender: FDA-Public Use
  Company Number: US-ELI_LILLY_AND_COMPANY-US201012004787

PATIENT
  Sex: Female
  Weight: 74.83 kg

DRUGS (12)
  1. COUMADIN [Concomitant]
  2. OMEPRAZOLE [Concomitant]
  3. IRON [Concomitant]
  4. FORTEO [Suspect]
     Dosage: 20 UG, QD
     Route: 065
  5. FORTEO [Suspect]
     Dosage: 20 UG, QD
  6. POTASSIUM CHLORIDE [Concomitant]
  7. MULTI-VITAMIN [Concomitant]
  8. FORTEO [Suspect]
     Indication: OSTEOPOROSIS
     Dosage: 20 UG, DAILY (1/D)
     Route: 065
     Dates: start: 20101021
  9. FORTEO [Suspect]
     Dosage: 20 UG, QD
  10. FORTEO [Suspect]
     Dosage: 20 UG, QD
  11. ULORIC [Concomitant]
  12. BENICAR [Concomitant]
     Dosage: 0.25 DF, UNK

REACTIONS (10)
  - PNEUMONIA [None]
  - INCREASED UPPER AIRWAY SECRETION [None]
  - RENAL IMPAIRMENT [None]
  - DIZZINESS [None]
  - BRAIN CONTUSION [None]
  - ARTHROPATHY [None]
  - INJECTION SITE HAEMATOMA [None]
  - HEAD INJURY [None]
  - COUGH [None]
  - RENAL FUNCTION TEST ABNORMAL [None]
